FAERS Safety Report 7804929-3 (Version None)
Quarter: 2011Q4

REPORT INFORMATION
  Report Type: 
  Country: None (occurrence: None)
  Receive Date: 20111010
  Receipt Date: 20111003
  Transmission Date: 20120403
  Serious: Yes (Hospitalization)
  Sender: FDA-Public Use
  Company Number: FR-B.I. PHARMACEUTICALS,INC./RIDGEFIELD-2011-FF-00913FF

PATIENT
  Age: 75 Year
  Sex: Female

DRUGS (2)
  1. PRADAXA [Suspect]
     Indication: THROMBOSIS PROPHYLAXIS
     Route: 048
  2. PRADAXA [Suspect]
     Indication: HIP ARTHROPLASTY

REACTIONS (2)
  - RECTAL CANCER [None]
  - RECTAL HAEMORRHAGE [None]
